FAERS Safety Report 6658204-3 (Version None)
Quarter: 2010Q1

REPORT INFORMATION
  Report Type: 
  Country: None (occurrence: None)
  Receive Date: 20100330
  Receipt Date: 20100311
  Transmission Date: 20100710
  Serious: Yes (Hospitalization, Other)
  Sender: FDA-Public Use
  Company Number: CA-MERCK-1003USA01753

PATIENT
  Sex: Male

DRUGS (1)
  1. ZETIA [Suspect]
     Route: 048

REACTIONS (10)
  - CHROMATURIA [None]
  - EYE DISORDER [None]
  - FAECES DISCOLOURED [None]
  - GASTROENTERITIS VIRAL [None]
  - HEPATITIS [None]
  - HOSPITALISATION [None]
  - MALAISE [None]
  - PRURITUS [None]
  - SINUSITIS [None]
  - YELLOW SKIN [None]
